FAERS Safety Report 24420613 (Version 2)
Quarter: 2024Q4

REPORT INFORMATION
  Report Type: Spontaneous
  Country: KE (occurrence: KE)
  Receive Date: 20241010
  Receipt Date: 20241018
  Transmission Date: 20250115
  Serious: No
  Sender: ROCHE
  Company Number: KE-BoehringerIngelheim-2024-BI-024543

PATIENT
  Age: 75 Year
  Sex: Male

DRUGS (1)
  1. ALTEPLASE [Suspect]
     Active Substance: ALTEPLASE
     Indication: Cerebrovascular accident
     Route: 065

REACTIONS (3)
  - Rash [Unknown]
  - Incorrect dose administered [Unknown]
  - Off label use [Unknown]
